FAERS Safety Report 15361799 (Version 2)
Quarter: 2018Q4

REPORT INFORMATION
  Report Type: Report from Study
  Country: US (occurrence: US)
  Receive Date: 20180907
  Receipt Date: 20181009
  Transmission Date: 20190204
  Serious: No
  Sender: FDA-Public Use
  Company Number: PHEH2018US037029

PATIENT
  Sex: Female

DRUGS (1)
  1. GILENYA [Suspect]
     Active Substance: FINGOLIMOD HYDROCHLORIDE
     Indication: MULTIPLE SCLEROSIS
     Dosage: 0.5 MG, QD
     Route: 048

REACTIONS (8)
  - Liver function test increased [Unknown]
  - Headache [Unknown]
  - White blood cell count decreased [Unknown]
  - Depression [Unknown]
  - Muscular weakness [Unknown]
  - Gingival bleeding [Unknown]
  - Oral pain [Unknown]
  - Balance disorder [Unknown]
